FAERS Safety Report 18691606 (Version 3)
Quarter: 2021Q1

REPORT INFORMATION
  Report Type: Spontaneous
  Country: JP (occurrence: JP)
  Receive Date: 20210101
  Receipt Date: 20210317
  Transmission Date: 20210419
  Serious: Yes (Life-Threatening, Hospitalization, Other)
  Sender: FDA-Public Use
  Company Number: JP-AMGEN-JPNSP2020173732

PATIENT
  Age: 71 Year
  Sex: Female
  Weight: 30 kg

DRUGS (19)
  1. CETILO [Concomitant]
     Active Substance: SENNA LEAF
     Dosage: 1 DOSAGE FORM, TID (1 TABLET AFTER EACH MEAL)
  2. HEPARINOID [Concomitant]
     Active Substance: CHONDROITIN SULFATE (BOVINE)
     Dosage: UNK UNK, BID (FOAM SPRAY)
  3. ETIZOLAM [Concomitant]
     Active Substance: ETIZOLAM
     Dosage: 0.02 GRAM, BID (AFTER BREAKFAST, AFTER DINNER)
  4. MASKIN [Concomitant]
     Dosage: 0.05 PERCENT, BID (WATER APPLY TO LEGS)
  5. SPIRONOLACTONE. [Concomitant]
     Active Substance: SPIRONOLACTONE
     Dosage: 25 MILLIGRAM, QD (AFTER BREAKFAST)
  6. PICOSULFATE [Concomitant]
     Active Substance: SODIUM PICOSULFATE
     Indication: CONSTIPATION
     Dosage: UNK UNK, AS NECESSARY (SOLUTION, AS NEEDED WHEN CONSTIPATED)
  7. ATOLANT [Concomitant]
     Dosage: 5 GRAM, TID
  8. MIDODRINE [MIDODRINE HYDROCHLORIDE] [Concomitant]
     Active Substance: MIDODRINE HYDROCHLORIDE
     Dosage: 4 MILLIGRAM, BID (AFTER BREAKFAST, AFTER DINNER)
  9. CALONAL [Concomitant]
     Active Substance: ACETAMINOPHEN
     Dosage: 300 MILLIGRAM, TID (AFTER EACH MEAL)
  10. EFFEXOR XR [Concomitant]
     Active Substance: VENLAFAXINE HYDROCHLORIDE
     Dosage: 75 MILLIGRAM, QD (AFTER DINNER)
  11. BELSOMRA [Concomitant]
     Active Substance: SUVOREXANT
     Dosage: 10 MILLIGRAM, QD (BEFORE BEDTIME)
  12. FLOMOX [CEFCAPENE PIVOXIL HYDROCHLORIDE] [Concomitant]
     Active Substance: CEFCAPENE PIVOXIL HYDROCHLORIDE
     Dosage: 100 MILLIGRAM, TID (AFTER EACH MEAL)
  13. CALCICOL [Concomitant]
     Active Substance: CALCIUM GLUCONATE
     Dosage: 4, 2, 3, UNK, QD, 0.5, 1,2,3,4, 5 , 6 MILLIMETRE, QD
     Dates: start: 20201023, end: 20201126
  14. MAGMITT [Concomitant]
     Active Substance: MAGNESIUM OXIDE
     Dosage: 330 MILLIGRAM, QD  (AFTER LUNCH) LATER 330 MILLIGRAM BID (AFTER BREAKFAST, AFTER DINNER)
  15. EVENITY [Suspect]
     Active Substance: ROMOSOZUMAB-AQQG
     Indication: OSTEOPOROSIS
     Dosage: 105 MILLIGRAM
     Route: 058
  16. EVENITY [Suspect]
     Active Substance: ROMOSOZUMAB-AQQG
     Dosage: 210 MILLIGRAM, QMO
     Route: 058
  17. THYRADIN S [Concomitant]
     Active Substance: LEVOTHYROXINE SODIUM
     Dosage: 25 MICROGRAM, QD (AFTER BREAKFAST)
  18. ZOLPIDEM [Concomitant]
     Active Substance: ZOLPIDEM TARTRATE
     Indication: INSOMNIA
     Dosage: 5 MILLIGRAM, AS NECESSARY (AS NEEDED WHEN CANNOT SLEEP)
  19. MYSER [DIFLUPREDNATE] [Concomitant]
     Dosage: 5 GRAM, BID

REACTIONS (2)
  - Off label use [Unknown]
  - Hypocalcaemia [Recovered/Resolved]

NARRATIVE: CASE EVENT DATE: 20201015
